FAERS Safety Report 20612239 (Version 1)
Quarter: 2022Q1

REPORT INFORMATION
  Report Type: Spontaneous
  Country: US (occurrence: None)
  Receive Date: 20220318
  Receipt Date: 20220318
  Transmission Date: 20220423
  Serious: No
  Sender: FDA-Public Use
  Company Number: None

PATIENT
  Age: 19 Year
  Sex: Female
  Weight: 57.15 kg

DRUGS (2)
  1. SECRET ANTIPERSPIRANT/DEODORANT POWDER FRESH [Suspect]
     Active Substance: ALUMINUM ZIRCONIUM TRICHLOROHYDREX GLY
     Indication: Personal hygiene
     Dosage: FREQUENCY : DAILY;?
     Route: 061
     Dates: start: 20210601, end: 20210608
  2. Birth Control- Nortrel [Concomitant]

REACTIONS (4)
  - Application site pain [None]
  - Application site pruritus [None]
  - Drug ineffective [None]
  - Therapy cessation [None]
